FAERS Safety Report 16148663 (Version 1)
Quarter: 2019Q2

REPORT INFORMATION
  Report Type: Report from Study
  Country: HU (occurrence: HU)
  Receive Date: 20190402
  Receipt Date: 20190402
  Transmission Date: 20190711
  Serious: Yes (Death, Other)
  Sender: FDA-Public Use
  Company Number: PHHY2019HU059934

PATIENT
  Sex: Male
  Weight: 60 kg

DRUGS (3)
  1. DOXILEK [Suspect]
     Active Substance: CALCIUM DOBESILATE
     Indication: ARTERIOSCLEROSIS
     Dosage: 2 DF, QD
     Route: 065
     Dates: start: 2016
  2. EUCREAS [Suspect]
     Active Substance: METFORMIN HYDROCHLORIDE\VILDAGLIPTIN
     Indication: DIABETES MELLITUS
     Dosage: UNK
     Route: 065
  3. PANTOPRAZOL [Suspect]
     Active Substance: PANTOPRAZOLE SODIUM
     Indication: GASTRITIS
     Dosage: 2 DF, QD
     Route: 065

REACTIONS (17)
  - Hypoacusis [Unknown]
  - Vasoconstriction [Unknown]
  - Cardiomegaly [Unknown]
  - Pulmonary congestion [Unknown]
  - Arteriosclerosis [Unknown]
  - Chronic obstructive pulmonary disease [Unknown]
  - Hydrothorax [Unknown]
  - Diabetes mellitus [Unknown]
  - Azotaemia [Unknown]
  - Pneumonia [Fatal]
  - Cardiac failure [Not Recovered/Not Resolved]
  - Ascites [Unknown]
  - Gastritis [Unknown]
  - Transaminases increased [Unknown]
  - Dehydration [Unknown]
  - Hypertension [Unknown]
  - Liver disorder [Unknown]

NARRATIVE: CASE EVENT DATE: 1990
